FAERS Safety Report 5034359-1 (Version None)
Quarter: 2006Q2

REPORT INFORMATION
  Report Type: 
  Country: None (occurrence: None)
  Receive Date: 20060626
  Receipt Date: 20060619
  Transmission Date: 20061013
  Serious: Yes (Other)
  Sender: FDA-Public Use
  Company Number: GB-ROCHE-452557

PATIENT
  Age: 36 Year
  Sex: Male

DRUGS (1)
  1. ROACCUTANE [Suspect]
     Indication: DRUG USE FOR UNKNOWN INDICATION
     Route: 048
     Dates: start: 19980515, end: 19980715

REACTIONS (3)
  - DYSPHAGIA [None]
  - OESOPHAGEAL STENOSIS [None]
  - WRONG TECHNIQUE IN DRUG USAGE PROCESS [None]
